FAERS Safety Report 12524868 (Version 2)
Quarter: 2016Q3

REPORT INFORMATION
  Report Type: Report from Study
  Country: LB (occurrence: LB)
  Receive Date: 20160704
  Receipt Date: 20160725
  Transmission Date: 20161109
  Serious: Yes (Death, Other)
  Sender: FDA-Public Use
  Company Number: PHHY2016LB091263

PATIENT
  Age: 81 Year
  Sex: Female

DRUGS (1)
  1. ACLASTA [Suspect]
     Active Substance: ZOLEDRONIC ACID
     Indication: PRODUCT USED FOR UNKNOWN INDICATION
     Route: 065

REACTIONS (7)
  - Infection [Fatal]
  - Pneumonia aspiration [Unknown]
  - Parkinson^s disease [Unknown]
  - Decubitus ulcer [Unknown]
  - Skin infection [Unknown]
  - Myocardial infarction [Fatal]
  - Sepsis [Fatal]

NARRATIVE: CASE EVENT DATE: 201605
